FAERS Safety Report 19160779 (Version 3)
Quarter: 2021Q2

REPORT INFORMATION
  Report Type: Spontaneous
  Country: FR (occurrence: FR)
  Receive Date: 20210421
  Receipt Date: 20210514
  Transmission Date: 20210717
  Serious: Yes (Hospitalization, Other)
  Sender: FDA-Public Use
  Company Number: FR-TEVA-2021-FR-1901788

PATIENT
  Age: 52 Year
  Sex: Female
  Weight: 61 kg

DRUGS (16)
  1. ANDROCUR [Suspect]
     Active Substance: CYPROTERONE ACETATE
     Dosage: 0.5 DF, SEVEN DAYS PER MONTH
     Route: 065
     Dates: start: 200507, end: 201108
  2. ANDROCUR [Suspect]
     Active Substance: CYPROTERONE ACETATE
     Dosage: UNK (7 DAYS PER MONTH)
     Route: 065
     Dates: start: 2000, end: 2004
  3. CYPROTERONE [Suspect]
     Active Substance: CYPROTERONE
     Indication: HYPERANDROGENISM
     Dosage: UNK UNK, UNKNOWN
     Route: 065
     Dates: start: 20090615
  4. BI PROFENID [Concomitant]
     Active Substance: KETOPROFEN
     Indication: PRODUCT USED FOR UNKNOWN INDICATION
     Dosage: UNK
     Route: 065
  5. CYPROTERONE [Suspect]
     Active Substance: CYPROTERONE
     Dosage: 50 MG, UNKNOWN
     Route: 065
  6. ESTRADIOL. [Suspect]
     Active Substance: ESTRADIOL
     Indication: PRODUCT USED FOR UNKNOWN INDICATION
     Dosage: UNK,THERAPY START DATE :ASKU,THERAPY END DATE :ASKU
     Route: 065
  7. OROMONE [Suspect]
     Active Substance: ESTRADIOL
     Indication: HYPERANDROGENISM
     Dosage: 1 MG (20 DAYS PER MONTHS)
     Route: 065
     Dates: start: 200507, end: 201108
  8. MOTILIUM [Concomitant]
     Active Substance: DOMPERIDONE
     Indication: PRODUCT USED FOR UNKNOWN INDICATION
     Dosage: 3 DOSAGE FORMS DAILY; UNIT DOE:3 DF,1 DF, TID
     Route: 065
  9. MIRENA [Suspect]
     Active Substance: LEVONORGESTREL
     Indication: HYPERANDROGENISM
     Route: 015
     Dates: start: 20040901, end: 20050913
  10. TRINORDIOL [Suspect]
     Active Substance: ETHINYL ESTRADIOL\LEVONORGESTREL
     Indication: PRODUCT USED FOR UNKNOWN INDICATION
     Route: 065
  11. ANDROCUR [Suspect]
     Active Substance: CYPROTERONE ACETATE
     Indication: HYPERANDROGENISM
     Dosage: 0.5 DF, 20 DAYS PER MONTH
     Route: 065
     Dates: start: 20120828, end: 20130826
  12. CYPROTERONE [Suspect]
     Active Substance: CYPROTERONE
     Dosage: 50 MG, UNKNOWN
     Route: 065
     Dates: start: 20110404
  13. ANDROCUR [Suspect]
     Active Substance: CYPROTERONE ACETATE
     Dosage: 0.5 DF, 20 DAYS PER MONTH
     Route: 065
     Dates: end: 201506
  14. CYPROTERONE [Suspect]
     Active Substance: CYPROTERONE
     Dosage: 50 MG, UNKNOWN
     Route: 065
     Dates: start: 20110606
  15. CYCLEANE [Suspect]
     Active Substance: DESOGESTREL\ETHINYL ESTRADIOL
     Indication: HYPERANDROGENISM
     Dosage: UNK (7 DAYS PER MONTH)
     Route: 065
     Dates: start: 2000, end: 2004
  16. ANDROCUR [Suspect]
     Active Substance: CYPROTERONE ACETATE
     Dosage: 0.5 DF (50 MG), 7 DAYS PER MONTH
     Route: 065
     Dates: start: 199806, end: 1999

REACTIONS (31)
  - Haemorrhage [Unknown]
  - Tension headache [Unknown]
  - Tumour haemorrhage [Unknown]
  - Pain of skin [Unknown]
  - Fatigue [Unknown]
  - Dysarthria [Unknown]
  - Squamous cell carcinoma [Unknown]
  - Skin lesion [Unknown]
  - Pain [Unknown]
  - Migraine [Unknown]
  - Feeling abnormal [Unknown]
  - Pain in extremity [Unknown]
  - Cognitive disorder [Unknown]
  - Haematoma [Unknown]
  - Muscle tightness [Unknown]
  - Aphasia [Unknown]
  - Meningioma [Unknown]
  - Hypothermia [Unknown]
  - Post procedural oedema [Unknown]
  - Sleep disorder [Unknown]
  - Seizure [Unknown]
  - Musculoskeletal stiffness [Unknown]
  - Nausea [Unknown]
  - Arthralgia [Unknown]
  - Psychomotor retardation [Unknown]
  - Scar [Unknown]
  - Headache [Unknown]
  - Language disorder [Unknown]
  - Epilepsy [Unknown]
  - Facial paralysis [Unknown]
  - Skin depigmentation [Unknown]

NARRATIVE: CASE EVENT DATE: 2014
